FAERS Safety Report 5162750-1 (Version None)
Quarter: 2006Q4

REPORT INFORMATION
  Report Type: 
  Country: None (occurrence: None)
  Receive Date: 20061201
  Receipt Date: 20060607
  Transmission Date: 20070319
  Serious: Yes (Other)
  Sender: FDA-Public Use
  Company Number: US-AVENTIS-200615068US

PATIENT

DRUGS (9)
  1. LANTUS [Suspect]
     Indication: DIABETES MELLITUS NON-INSULIN-DEPENDENT
     Dates: start: 20050901
  2. OPTICLIK (INSULIN INJECTION PEN) [Suspect]
     Indication: DIABETES MELLITUS NON-INSULIN-DEPENDENT
     Dosage: DOSE: UNKNOWN
     Dates: start: 20050901
  3. NOVOLOG [Concomitant]
  4. SLO-MAG [Concomitant]
     Dosage: DOSE: UNKNOWN
  5. PROGRAF [Concomitant]
     Dosage: DOSE: UNKNOWN
  6. PRILOSEC                           /00661201/ [Concomitant]
     Dosage: DOSE: UNKNOWN
  7. FOSAMAX [Concomitant]
     Dosage: DOSE: UNKNOWN
  8. LASIX [Concomitant]
     Dosage: DOSE: UNKNOWN
  9. NASAL PREPARATIONS [Concomitant]
     Dosage: DOSE: UNKNOWN

REACTIONS (7)
  - ASCITES [None]
  - BLOOD GLUCOSE DECREASED [None]
  - BLOOD GLUCOSE INCREASED [None]
  - DIARRHOEA [None]
  - INCORRECT DOSE ADMINISTERED [None]
  - PHARMACEUTICAL PRODUCT COMPLAINT [None]
  - PLEURAL EFFUSION [None]
